FAERS Safety Report 4809318-1 (Version None)
Quarter: 2005Q4

REPORT INFORMATION
  Report Type: 
  Country: None (occurrence: None)
  Receive Date: 20051021
  Receipt Date: 20020624
  Transmission Date: 20060501
  Serious: No
  Sender: FDA-Public Use
  Company Number: USA020617443

PATIENT
  Age: 41 Year
  Sex: Female

DRUGS (2)
  1. ZYPREXA [Suspect]
     Indication: AFFECTIVE DISORDER
     Dosage: 5 MG/DAY
  2. EFFEXOR XR [Suspect]

REACTIONS (4)
  - FLUID RETENTION [None]
  - MENORRHAGIA [None]
  - MENSTRUATION IRREGULAR [None]
  - SWELLING FACE [None]
